FAERS Safety Report 7806668-1 (Version None)
Quarter: 2011Q4

REPORT INFORMATION
  Report Type: 
  Country: None (occurrence: None)
  Receive Date: 20111007
  Receipt Date: 20111004
  Transmission Date: 20120403
  Serious: Yes (Hospitalization)
  Sender: FDA-Public Use
  Company Number: DL2011-0775

PATIENT
  Age: 28 Year
  Sex: Female

DRUGS (2)
  1. DOXYCYCLINE [Concomitant]
  2. MIFEPRISTONE (MIFEPREX) [Suspect]
     Indication: ABORTION INDUCED
     Dosage: 200 MG, ORAL
     Route: 048
     Dates: start: 20110524

REACTIONS (5)
  - SUICIDE ATTEMPT [None]
  - RETAINED PRODUCTS OF CONCEPTION [None]
  - VAGINAL HAEMORRHAGE [None]
  - HAEMOGLOBIN DECREASED [None]
  - INTENTIONAL OVERDOSE [None]
